FAERS Safety Report 7253079-6 (Version None)
Quarter: 2011Q1

REPORT INFORMATION
  Report Type: 
  Country: None (occurrence: None)
  Receive Date: 20110129
  Receipt Date: 20100125
  Transmission Date: 20110831
  Serious: No
  Sender: FDA-Public Use
  Company Number: US-ABBOTT-10P-163-0622503-00

PATIENT
  Sex: Female
  Weight: 74.002 kg

DRUGS (10)
  1. ASPIRIN [Concomitant]
     Indication: PRODUCT USED FOR UNKNOWN INDICATION
  2. FLEXERIL [Concomitant]
     Indication: MUSCLE SPASMS
  3. BENICAR HCT [Concomitant]
     Indication: HYPERTENSION
     Dosage: 40/12.5, DAILY
  4. PAXIL CR [Concomitant]
     Indication: DEPRESSION
  5. HUMIRA [Suspect]
     Indication: RHEUMATOID ARTHRITIS
     Route: 058
     Dates: start: 20060101, end: 20090901
  6. SPIRONOLACTONE [Concomitant]
     Indication: BLOOD PRESSURE
  7. CELEBREX [Concomitant]
     Indication: PRODUCT USED FOR UNKNOWN INDICATION
  8. PHENOBARBITAL [Concomitant]
     Indication: CONVULSION
     Route: 048
  9. LORA TAB [Concomitant]
     Indication: PAIN
  10. HUMIRA [Suspect]
     Route: 058
     Dates: start: 20090901, end: 20100101

REACTIONS (1)
  - DRUG INEFFECTIVE [None]
